FAERS Safety Report 7242763-6 (Version None)
Quarter: 2011Q1

REPORT INFORMATION
  Report Type: 
  Country: None (occurrence: None)
  Receive Date: 20110125
  Receipt Date: 20110119
  Transmission Date: 20110831
  Serious: Yes (Other)
  Sender: FDA-Public Use
  Company Number: US-PFIZER INC-2010180542

PATIENT
  Sex: Female
  Weight: 92.971 kg

DRUGS (7)
  1. VICODIN [Concomitant]
     Indication: FIBROMYALGIA
     Dosage: UNK
  2. TYLENOL-500 [Concomitant]
     Indication: FIBROMYALGIA
     Dosage: UNK
  3. MILNACIPRAN HYDROCHLORIDE [Concomitant]
     Indication: FIBROMYALGIA
     Dosage: UNK
  4. CELEBREX [Suspect]
     Indication: FIBROMYALGIA
  5. CELEBREX [Suspect]
     Indication: ARTHRALGIA
     Dosage: UNK
     Route: 048
     Dates: end: 20100101
  6. ATIVAN [Concomitant]
     Indication: ANXIETY
     Dosage: UNK
  7. TIZANIDINE [Concomitant]
     Indication: MUSCLE RELAXANT THERAPY
     Dosage: UNK

REACTIONS (2)
  - GASTRIC FISTULA [None]
  - GASTRIC ULCER [None]
